FAERS Safety Report 7845230-1 (Version None)
Quarter: 2011Q4

REPORT INFORMATION
  Report Type: 
  Country: None (occurrence: None)
  Receive Date: 20111025
  Receipt Date: 20111020
  Transmission Date: 20120403
  Serious: Yes (Other)
  Sender: FDA-Public Use
  Company Number: CA-ABBOTT-11P-028-0867106-00

PATIENT
  Sex: Female
  Weight: 112.14 kg

DRUGS (14)
  1. HUMIRA [Suspect]
     Route: 058
     Dates: start: 20111013
  2. HUMIRA [Suspect]
     Indication: PSORIATIC ARTHROPATHY
     Route: 058
     Dates: start: 20080819, end: 20110601
  3. ADVAIR DISKUS 100/50 [Concomitant]
     Indication: CHRONIC OBSTRUCTIVE PULMONARY DISEASE
     Route: 055
     Dates: start: 20020101
  4. METHOTREXATE [Concomitant]
     Indication: PSORIATIC ARTHROPATHY
     Route: 058
     Dates: start: 20060101
  5. FOLIC ACID [Concomitant]
     Indication: VITAMIN SUPPLEMENTATION
     Route: 048
     Dates: start: 20060101
  6. SINGULAIR [Concomitant]
     Indication: ASTHMA
     Route: 048
     Dates: start: 20020101
  7. RAMIPRIL [Concomitant]
     Indication: HYPERTENSION
     Route: 048
  8. PREVACID [Concomitant]
     Indication: GASTRIC DISORDER
     Route: 048
  9. SYNTHROID [Concomitant]
     Indication: HYPOTHYROIDISM
     Route: 048
  10. DIDROCAL [Concomitant]
     Indication: BONE DISORDER
     Dosage: 1 IN 1 DAY, 400MG/500MG
     Route: 048
     Dates: start: 20010101
  11. ADVAIR DISKUS 100/50 [Concomitant]
     Route: 055
  12. LIPITOR [Concomitant]
     Indication: BLOOD CHOLESTEROL INCREASED
     Route: 048
  13. SPIRIVA [Concomitant]
     Indication: CHRONIC OBSTRUCTIVE PULMONARY DISEASE
     Route: 055
     Dates: start: 20090601
  14. TYLENOL FOR ARTHRITIS [Concomitant]
     Indication: PSORIATIC ARTHROPATHY
     Route: 048

REACTIONS (2)
  - GAIT DISTURBANCE [None]
  - ARTHRITIS [None]
